FAERS Safety Report 7495461-8 (Version None)
Quarter: 2011Q2

REPORT INFORMATION
  Report Type: 
  Country: None (occurrence: None)
  Receive Date: 20110523
  Receipt Date: 20110429
  Transmission Date: 20111010
  Serious: Yes (Hospitalization, Other)
  Sender: FDA-Public Use
  Company Number: US-JNJFOC-20101207498

PATIENT
  Age: 63 Year
  Sex: Female
  Weight: 49.9 kg

DRUGS (7)
  1. UNKNOWN MEDICATION [Suspect]
     Indication: SHORT-BOWEL SYNDROME
     Route: 065
  2. IMODIUM MULTI-SYMPTOM RELIEF [Suspect]
     Indication: SHORT-BOWEL SYNDROME
     Dosage: 2 CAPLETS 3-7 TIMES A DAY
     Route: 048
     Dates: start: 20060101
  3. IMODIUM MULTI-SYMPTOM RELIEF [Suspect]
     Indication: DIARRHOEA
     Dosage: 2 CAPLETS 3-7 TIMES A DAY
     Route: 048
     Dates: start: 20060101
  4. SANDOSTATIN [Suspect]
     Indication: DIARRHOEA
     Route: 030
     Dates: start: 20080501
  5. SANDOSTATIN [Suspect]
     Indication: SHORT-BOWEL SYNDROME
     Route: 030
     Dates: start: 20080501
  6. QUESTRAN [Suspect]
     Indication: SHORT-BOWEL SYNDROME
     Route: 065
  7. OCTREOTIDE ACETATE [Concomitant]
     Indication: DIARRHOEA
     Dosage: 300MCG/ 4 X PER DAY
     Dates: start: 20080501

REACTIONS (3)
  - OVERDOSE [None]
  - INCORRECT DOSE ADMINISTERED [None]
  - COLONIC PSEUDO-OBSTRUCTION [None]
